FAERS Safety Report 23632450 (Version 1)
Quarter: 2024Q1

REPORT INFORMATION
  Report Type: Spontaneous
  Country: DE (occurrence: DE)
  Receive Date: 20240314
  Receipt Date: 20240314
  Transmission Date: 20240409
  Serious: Yes (Hospitalization)
  Sender: FDA-Public Use
  Company Number: DE-Eisai-EC-2024-160519

PATIENT
  Age: 32 Month
  Sex: Male
  Weight: 13 kg

DRUGS (4)
  1. MIRTAZAPINE [Suspect]
     Active Substance: MIRTAZAPINE
     Indication: Accidental exposure to product by child
     Dosage: 15 MILLIGRAM, ONCE (1 TOTAL)
     Route: 048
     Dates: start: 20240226, end: 20240226
  2. LAMOTRIGINE [Suspect]
     Active Substance: LAMOTRIGINE
     Indication: Accidental exposure to product by child
     Dosage: 75 MILLIGRAM, ONCE, (1 TOTAL)
     Route: 048
     Dates: start: 20240226, end: 20240226
  3. FYCOMPA [Suspect]
     Active Substance: PERAMPANEL
     Indication: Accidental exposure to product by child
     Dosage: 4 MILLIGRAM, ONCE, (1 TOTAL)
     Route: 048
     Dates: start: 20240226, end: 20240226
  4. QUETIAPINE [Suspect]
     Active Substance: QUETIAPINE
     Indication: Accidental exposure to product by child
     Dosage: 75 MILLIGRAM, ONCE, (1 TOTAL)
     Route: 048
     Dates: start: 20240226, end: 20240226

REACTIONS (3)
  - Miosis [Recovered/Resolved]
  - Fatigue [Recovered/Resolved]
  - Accidental exposure to product by child [Recovered/Resolved]

NARRATIVE: CASE EVENT DATE: 20240226
